FAERS Safety Report 9562077 (Version 2)
Quarter: 2013Q3

REPORT INFORMATION
  Report Type: Spontaneous
  Country: JP (occurrence: JP)
  Receive Date: 20130927
  Receipt Date: 20130927
  Transmission Date: 20140515
  Serious: Yes (Other)
  Sender: FDA-Public Use
  Company Number: JP-ASTRAZENECA-2013SE71916

PATIENT
  Sex: Male

DRUGS (4)
  1. MEROPEN [Suspect]
     Indication: PNEUMONIA
     Route: 042
     Dates: start: 20130909, end: 20130910
  2. EPIRENAT [Interacting]
     Route: 048
  3. EPIRENAT [Interacting]
     Dosage: DEPAKENE-R
     Route: 048
  4. ALEVIATIN [Concomitant]
     Route: 042

REACTIONS (2)
  - Epilepsy [Unknown]
  - Labelled drug-drug interaction medication error [Unknown]
